FAERS Safety Report 13360154 (Version 1)
Quarter: 2017Q1

REPORT INFORMATION
  Report Type: Spontaneous
  Country: US (occurrence: US)
  Receive Date: 20170322
  Receipt Date: 20170322
  Transmission Date: 20170429
  Serious: No
  Sender: FDA-Public Use
  Company Number: US-AMNEAL PHARMACEUTICALS-2016AMN00716

PATIENT
  Age: 72 Year
  Sex: Female
  Weight: 52.15 kg

DRUGS (2)
  1. ESTRADIOL. [Suspect]
     Active Substance: ESTRADIOL
     Indication: VULVOVAGINAL DRYNESS
     Dosage: 10 MCG, 2X/WEEK
     Route: 067
     Dates: start: 20161202, end: 20161202
  2. ESTRADIOL. [Suspect]
     Active Substance: ESTRADIOL
     Dosage: 10 MCG, 2X/WEEK
     Dates: start: 20161205, end: 20161205

REACTIONS (3)
  - Vaginal erosion [Recovered/Resolved]
  - Vulvovaginal burning sensation [Recovered/Resolved]
  - Drug ineffective [Unknown]

NARRATIVE: CASE EVENT DATE: 20161202
